FAERS Safety Report 6343970-7 (Version None)
Quarter: 2009Q3

REPORT INFORMATION
  Report Type: 
  Country: None (occurrence: None)
  Receive Date: 20090908
  Receipt Date: 20090824
  Transmission Date: 20100115
  Serious: Yes (Hospitalization)
  Sender: FDA-Public Use
  Company Number: CH-TEVA-208322ISR

PATIENT
  Age: 57 Year
  Sex: Female

DRUGS (6)
  1. ALENDRONIC ACID [Suspect]
     Indication: OSTEOPOROSIS
  2. IBANDRONATE SODIUM [Suspect]
  3. ESOMEPRAZOLE [Concomitant]
  4. CALCIUM CARBONATE [Concomitant]
  5. ESOMEPRAZOLE [Concomitant]
     Indication: HIATUS HERNIA
  6. CORTICOSTEROIDS [Concomitant]

REACTIONS (1)
  - FEMUR FRACTURE [None]
